FAERS Safety Report 7548840-4 (Version None)
Quarter: 2011Q2

REPORT INFORMATION
  Report Type: 
  Country: None (occurrence: None)
  Receive Date: 20110615
  Receipt Date: 20110609
  Transmission Date: 20111010
  Serious: Yes (Other)
  Sender: FDA-Public Use
  Company Number: DE-PFIZER INC-2011126862

PATIENT
  Age: 84 Year
  Sex: Female

DRUGS (1)
  1. AROMASIN [Suspect]

REACTIONS (7)
  - HYPOTHYROIDISM [None]
  - URGE INCONTINENCE [None]
  - OSTEOPOROSIS [None]
  - PAIN [None]
  - HYPERTENSION [None]
  - CORONARY ARTERY DISEASE [None]
  - DEMENTIA [None]
